FAERS Safety Report 10181569 (Version 1)
Quarter: 2014Q2

REPORT INFORMATION
  Report Type: Spontaneous
  Country: JP (occurrence: JP)
  Receive Date: 20140519
  Receipt Date: 20140519
  Transmission Date: 20141212
  Serious: Yes (Other)
  Sender: FDA-Public Use
  Company Number: JP-GLAXOSMITHKLINE-B0963139A

PATIENT
  Sex: Female

DRUGS (1)
  1. VOTRIENT 200MG [Suspect]
     Indication: PRODUCT USED FOR UNKNOWN INDICATION
     Dosage: 800MG PER DAY
     Route: 048
     Dates: start: 2014, end: 2014

REACTIONS (3)
  - Retinal haemorrhage [Not Recovered/Not Resolved]
  - Rash [Recovered/Resolved]
  - Calcinosis [Recovered/Resolved]
